FAERS Safety Report 11023521 (Version 1)
Quarter: 2015Q2

REPORT INFORMATION
  Report Type: Spontaneous
  Country: US (occurrence: US)
  Receive Date: 20150413
  Receipt Date: 20150413
  Transmission Date: 20150821
  Serious: No
  Sender: FDA-Public Use
  Company Number: US-PFIZER INC-2015123442

PATIENT

DRUGS (1)
  1. CHANTIX [Suspect]
     Active Substance: VARENICLINE TARTRATE
     Dosage: UNK

REACTIONS (7)
  - Irritability [Unknown]
  - Feeling of despair [Unknown]
  - Anxiety [Unknown]
  - Anger [Unknown]
  - Frustration [Unknown]
  - Insomnia [Unknown]
  - Fatigue [Unknown]
